FAERS Safety Report 9995006 (Version 2)
Quarter: 2014Q1

REPORT INFORMATION
  Report Type: Spontaneous
  Country: GB (occurrence: GB)
  Receive Date: 20140311
  Receipt Date: 20140325
  Transmission Date: 20141002
  Serious: Yes (Death, Hospitalization, Other)
  Sender: FDA-Public Use
  Company Number: GB-JNJFOC-20140303778

PATIENT
  Age: 38 Year
  Sex: Male

DRUGS (4)
  1. PARACETAMOL [Suspect]
     Route: 065
  2. PARACETAMOL [Suspect]
     Indication: MIGRAINE
     Dosage: BEEN TAKING LARGE QUANTITY FOR SOME YEARS
     Route: 065
  3. DANABOL [Suspect]
     Indication: MUSCLE BUILDING THERAPY
     Route: 065
  4. NUROFEN [Suspect]
     Indication: MIGRAINE
     Dosage: BEEN TAKING LARGE QUANTITY FOR SOME YEARS
     Route: 065

REACTIONS (1)
  - Hepatic failure [Fatal]
